FAERS Safety Report 5194640-2 (Version None)
Quarter: 2006Q4

REPORT INFORMATION
  Report Type: 
  Country: None (occurrence: None)
  Receive Date: 20061222
  Receipt Date: 20061222
  Transmission Date: 20070319
  Serious: Yes (Hospitalization)
  Sender: FDA-Public Use
  Company Number: None

PATIENT
  Age: 52 Year
  Sex: Male
  Weight: 102.2 kg

DRUGS (1)
  1. SIMVASTATIN [Suspect]
     Dosage: 80 MG  ONCE AT BEDTIME  PO
     Route: 048
     Dates: start: 20040309, end: 20061029

REACTIONS (2)
  - CHEST PAIN [None]
  - MYALGIA [None]
